FAERS Safety Report 22330138 (Version 1)
Quarter: 2023Q2

REPORT INFORMATION
  Report Type: Spontaneous
  Country: CN (occurrence: CN)
  Receive Date: 20230517
  Receipt Date: 20230517
  Transmission Date: 20230722
  Serious: Yes (Other)
  Sender: FDA-Public Use
  Company Number: CN-AMGEN-CHNSP2023082861

PATIENT
  Age: 54 Year
  Sex: Female
  Weight: 55 kg

DRUGS (3)
  1. PROLIA [Suspect]
     Active Substance: DENOSUMAB
     Indication: Intervertebral disc protrusion
     Dosage: 60 MILLIGRAM, 1
     Route: 058
     Dates: start: 20230427, end: 20230427
  2. PROLIA [Suspect]
     Active Substance: DENOSUMAB
     Indication: Osteoporosis
  3. CALCITONIN SALMON [Suspect]
     Active Substance: CALCITONIN SALMON
     Indication: Intervertebral disc protrusion
     Dosage: 100 INTERNATIONAL UNIT, 2 1
     Route: 045
     Dates: start: 20230427, end: 20230429

REACTIONS (1)
  - Hepatic function abnormal [Recovering/Resolving]

NARRATIVE: CASE EVENT DATE: 20230430
